FAERS Safety Report 5496577-8 (Version None)
Quarter: 2007Q4

REPORT INFORMATION
  Report Type: 
  Country: None (occurrence: None)
  Receive Date: 20071025
  Receipt Date: 20070723
  Transmission Date: 20080405
  Serious: No
  Sender: FDA-Public Use
  Company Number: A0658939A

PATIENT
  Age: 51 Year
  Sex: Female

DRUGS (3)
  1. ADVAIR DISKUS 100/50 [Suspect]
     Route: 055
     Dates: start: 20070601
  2. ALBUTEROL [Concomitant]
     Indication: ASTHMA
     Dosage: .083PCT FOUR TIMES PER DAY
     Route: 055
     Dates: start: 20070619
  3. PREDNISONE [Concomitant]
     Dosage: 20MG AS DIRECTED
     Route: 048
     Dates: start: 20070615

REACTIONS (4)
  - CONFUSIONAL STATE [None]
  - DRUG INEFFECTIVE [None]
  - MEDICATION ERROR [None]
  - PHARMACEUTICAL PRODUCT COMPLAINT [None]
